FAERS Safety Report 8346521-0 (Version None)
Quarter: 2012Q1

REPORT INFORMATION
  Report Type: 
  Country: None (occurrence: None)
  Receive Date: 20120315
  Receipt Date: 20110523
  Transmission Date: 20120608
  Serious: No
  Sender: FDA-Public Use
  Company Number: PHHY2011US39420

PATIENT
  Age: 47 Year
  Sex: Female

DRUGS (6)
  1. ROVIGIL (MODAFINIL) [Concomitant]
  2. VESICARE [Concomitant]
  3. PAROXETINE HCL [Concomitant]
  4. GILENYA [Suspect]
     Indication: MULTIPLE SCLEROSIS
     Dosage: 0.5 MG, DAILY, ORAL
     Route: 048
     Dates: start: 20110503
  5. GABAPENTIN [Concomitant]
  6. VYTORIN [Concomitant]

REACTIONS (1)
  - PYREXIA [None]
